FAERS Safety Report 7237949-0 (Version None)
Quarter: 2011Q1

REPORT INFORMATION
  Report Type: 
  Country: None (occurrence: None)
  Receive Date: 20110121
  Receipt Date: 20110119
  Transmission Date: 20110831
  Serious: Yes (Hospitalization)
  Sender: FDA-Public Use
  Company Number: JP-PFIZER INC-2010029247

PATIENT
  Age: 59 Year
  Sex: Male
  Weight: 39.9 kg

DRUGS (6)
  1. PREDONINE [Concomitant]
     Dosage: UNK
     Route: 048
     Dates: start: 20071001
  2. KLARICID [Concomitant]
     Dosage: UNK
     Route: 048
     Dates: start: 20091103
  3. MUCODYNE [Concomitant]
     Dosage: UNK
     Route: 048
     Dates: start: 20071001
  4. GASTER OD [Concomitant]
     Dosage: UNK
     Route: 048
     Dates: start: 20071001
  5. VFEND [Suspect]
     Indication: ASPERGILLUS TEST POSITIVE
     Dosage: 400MG/ DAY
     Route: 048
     Dates: start: 20091103, end: 20091109
  6. CRAVIT [Concomitant]
     Dosage: UNK
     Route: 048
     Dates: start: 20090101

REACTIONS (1)
  - INAPPROPRIATE ANTIDIURETIC HORMONE SECRETION [None]
